FAERS Safety Report 9074772 (Version 1)
Quarter: 2013Q1

REPORT INFORMATION
  Report Type: Spontaneous
  Country: US (occurrence: US)
  Receive Date: 20130129
  Receipt Date: 20130129
  Transmission Date: 20140127
  Serious: Yes (Other)
  Sender: FDA-Public Use
  Company Number: US-AMGEN-USASP2013004963

PATIENT
  Age: 66 Year
  Sex: Female

DRUGS (6)
  1. PROLIA [Suspect]
     Indication: OSTEOPOROSIS POSTMENOPAUSAL
     Dosage: 60 MG, Q6MO
     Dates: start: 201111
  2. SINGULAIR [Concomitant]
  3. OMEPRAZOLE [Concomitant]
  4. SYNTHROID [Concomitant]
  5. VITAMIN D /00107901/ [Concomitant]
  6. CALCIUM [Concomitant]

REACTIONS (1)
  - Breast cancer [Unknown]
